FAERS Safety Report 12757851 (Version 1)
Quarter: 2016Q3

REPORT INFORMATION
  Report Type: Spontaneous
  Country: US (occurrence: US)
  Receive Date: 20160919
  Receipt Date: 20160919
  Transmission Date: 20161109
  Serious: No
  Sender: FDA-Public Use
  Company Number: US-PFIZER INC-2016433781

PATIENT
  Age: 69 Year
  Sex: Female
  Weight: 60.77 kg

DRUGS (1)
  1. XELJANZ [Suspect]
     Active Substance: TOFACITINIB CITRATE
     Indication: RHEUMATOID ARTHRITIS
     Dosage: 5 MG, 2X/DAY
     Route: 048
     Dates: start: 201508, end: 201607

REACTIONS (2)
  - Rash [Unknown]
  - Skin lesion [Unknown]

NARRATIVE: CASE EVENT DATE: 201607
